FAERS Safety Report 6309799-0 (Version None)
Quarter: 2009Q3

REPORT INFORMATION
  Report Type: 
  Country: None (occurrence: None)
  Receive Date: 20090814
  Receipt Date: 20090803
  Transmission Date: 20100115
  Serious: Yes (Other)
  Sender: FDA-Public Use
  Company Number: FR-ELI_LILLY_AND_COMPANY-FR200908000246

PATIENT
  Age: 83 Year
  Sex: Female
  Weight: 162 kg

DRUGS (1)
  1. FORTEO [Suspect]
     Indication: OSTEOPOROSIS
     Dosage: 20 UG, DAILY (1/D)
     Route: 065
     Dates: start: 20090421, end: 20090615

REACTIONS (3)
  - NAUSEA [None]
  - VERTIGO [None]
  - WEIGHT DECREASED [None]
